FAERS Safety Report 8397718-5 (Version None)
Quarter: 2012Q2

REPORT INFORMATION
  Report Type: 
  Country: None (occurrence: None)
  Receive Date: 20120525
  Receipt Date: 20120516
  Transmission Date: 20120825
  Serious: Yes (Other)
  Sender: FDA-Public Use
  Company Number: 2012SP026437

PATIENT
  Age: 19 Year
  Sex: Female

DRUGS (4)
  1. SAPHRIS [Suspect]
     Indication: BIPOLAR DISORDER
     Dosage: 5 MG;BID;SL
     Route: 060
     Dates: start: 20120515
  2. HYDROXYZINE [Concomitant]
  3. CITALOPRAM HYDROBROMIDE [Concomitant]
  4. LORAZEPAN [Concomitant]

REACTIONS (2)
  - OROPHARYNGEAL PAIN [None]
  - GAIT DISTURBANCE [None]
